FAERS Safety Report 10483130 (Version 1)
Quarter: 2014Q3

REPORT INFORMATION
  Report Type: Spontaneous
  Country: FR (occurrence: FR)
  Receive Date: 20140930
  Receipt Date: 20140930
  Transmission Date: 20150326
  Serious: Yes (Hospitalization)
  Sender: FDA-Public Use
  Company Number: FR-ACCORD-026130

PATIENT
  Age: 68 Year
  Sex: Female

DRUGS (4)
  1. ZOPHREN [Suspect]
     Active Substance: ONDANSETRON
     Indication: PREMEDICATION
     Dosage: STRENGTH : 8 MG/4ML
     Route: 042
     Dates: start: 20140130, end: 20140130
  2. ACCORD GEMCITABINE [Suspect]
     Active Substance: GEMCITABINE HYDROCHLORIDE
     Indication: ENDOMETRIAL CANCER
     Dosage: SINGLE INTAKE
     Route: 042
     Dates: start: 20140130, end: 20140130
  3. MERCK [Concomitant]
     Indication: PREMEDICATION
     Route: 042
     Dates: start: 20140130
  4. CARBOPLATINE HOSPIRA [Suspect]
     Active Substance: CARBOPLATIN
     Indication: ENDOMETRIAL CANCER
     Dosage: STRENGTH : 10 MG/ML
     Route: 042
     Dates: start: 20140130, end: 20140130

REACTIONS (6)
  - Erythema [Recovered/Resolved]
  - Hot flush [Recovered/Resolved]
  - Off label use [Unknown]
  - Abdominal pain [Recovered/Resolved]
  - Nausea [Recovered/Resolved]
  - Thrombocytopenia [Unknown]

NARRATIVE: CASE EVENT DATE: 20140130
